FAERS Safety Report 22623310 (Version 2)
Quarter: 2023Q4

REPORT INFORMATION
  Report Type: Other
  Country: FR (occurrence: None)
  Receive Date: 20230621
  Receipt Date: 20231128
  Transmission Date: 20240110
  Serious: Yes (Other)
  Sender: FDA-Public Use
  Company Number: FR-ROCHE-3370990

PATIENT

DRUGS (8)
  1. RANIBIZUMAB [Suspect]
     Active Substance: RANIBIZUMAB
     Indication: Retinal haemorrhage
     Dosage: THE DOSE WAS SIMILAR IN BOTH SURGERY AND PD GROUP.
     Route: 050
  2. RANIBIZUMAB [Suspect]
     Active Substance: RANIBIZUMAB
     Indication: Neovascular age-related macular degeneration
  3. ALTEPLASE [Suspect]
     Active Substance: ALTEPLASE
     Indication: Retinal haemorrhage
     Dosage: FOR SURGERY GROUP: DILUTED CONCENTRATION OF 100 MG IN 1 ML
     Route: 050
  4. ALTEPLASE [Suspect]
     Active Substance: ALTEPLASE
     Indication: Neovascular age-related macular degeneration
  5. ALTEPLASE [Suspect]
     Active Substance: ALTEPLASE
     Indication: Retinal haemorrhage
     Dosage: FOR BD GROUP: 0.05 ML (50 UG) OF ALTEPLASE TPA (WITH A CONCENTRATION OF 1000 UG IN 1 ML) WAS INJECTE
     Route: 050
  6. ALTEPLASE [Suspect]
     Active Substance: ALTEPLASE
     Indication: Neovascular age-related macular degeneration
  7. SULFUR HEXAFLUORIDE [Concomitant]
     Active Substance: SULFUR HEXAFLUORIDE
     Dosage: FOR SURGERY GROUP: AIR-GAS EXCHANGE OF 20% SF6 USING AT LEAST 30 ML OF DILUTED GAS
  8. SULFUR HEXAFLUORIDE [Concomitant]
     Active Substance: SULFUR HEXAFLUORIDE
     Dosage: FOR PD GROUP: 0.3 ML OF PURE SF6 GAS WAS INJECTED

REACTIONS (8)
  - Choroidal haemorrhage [Unknown]
  - Retinal detachment [Unknown]
  - Vitreous haemorrhage [Unknown]
  - Hyphaema [Unknown]
  - Intraocular pressure increased [Unknown]
  - Macular hole [Unknown]
  - Cataract [Unknown]
  - Genital haemorrhage [Unknown]
